FAERS Safety Report 11765528 (Version 1)
Quarter: 2015Q4

REPORT INFORMATION
  Report Type: Spontaneous
  Country: US (occurrence: US)
  Receive Date: 20151120
  Receipt Date: 20151120
  Transmission Date: 20160304
  Serious: No
  Sender: FDA-Public Use
  Company Number: US-ELI_LILLY_AND_COMPANY-US201405006312

PATIENT
  Age: 78 Year
  Sex: Female

DRUGS (2)
  1. FORTEO [Suspect]
     Active Substance: TERIPARATIDE
     Indication: OSTEOPOROSIS
     Dosage: UNK UNK, QD
     Route: 065
     Dates: start: 20140505, end: 20140513
  2. FORTEO [Suspect]
     Active Substance: TERIPARATIDE
     Dosage: UNK, 2/W
     Route: 065
     Dates: start: 20140513

REACTIONS (4)
  - Nausea [Recovering/Resolving]
  - Inappropriate schedule of drug administration [Unknown]
  - Dizziness [Recovering/Resolving]
  - Vomiting [Recovering/Resolving]

NARRATIVE: CASE EVENT DATE: 201405
